FAERS Safety Report 11843460 (Version 2)
Quarter: 2015Q4

REPORT INFORMATION
  Report Type: Report from Study
  Country: DE (occurrence: DE)
  Receive Date: 20151217
  Receipt Date: 20151230
  Transmission Date: 20160305
  Serious: Yes (Other)
  Sender: FDA-Public Use
  Company Number: DE-AMGEN-DEUNI2015134207

PATIENT
  Age: 50 Year
  Sex: Female
  Weight: 61 kg

DRUGS (3)
  1. ETANERCEPT [Suspect]
     Active Substance: ETANERCEPT
     Indication: PSORIATIC ARTHROPATHY
     Dosage: 50 MG, QWK
     Route: 058
     Dates: start: 20151030
  2. METEX                              /00082702/ [Suspect]
     Active Substance: METFORMIN HYDROCHLORIDE
     Indication: PSORIATIC ARTHROPATHY
     Dosage: 7.5 MG, WEEKLY
     Route: 058
     Dates: start: 20151116, end: 20151207
  3. FOLCUR [Concomitant]
     Indication: PSORIATIC ARTHROPATHY
     Dosage: 5 MG, WEEKLY
     Route: 048
     Dates: start: 20151116, end: 20151207

REACTIONS (1)
  - Lymphadenitis [Not Recovered/Not Resolved]

NARRATIVE: CASE EVENT DATE: 20151207
